FAERS Safety Report 8385683-6 (Version None)
Quarter: 2012Q2

REPORT INFORMATION
  Report Type: 
  Country: None (occurrence: None)
  Receive Date: 20120525
  Receipt Date: 20120518
  Transmission Date: 20120825
  Serious: Yes (Other)
  Sender: FDA-Public Use
  Company Number: US-PFIZER INC-2012081340

PATIENT
  Sex: Female

DRUGS (29)
  1. BETHANECHOL [Concomitant]
     Indication: NEUROGENIC BLADDER
     Dosage: 25 MG, 2X/DAY
  2. SENNA [Concomitant]
     Dosage: 2-3 DAILY
  3. FUROSEMIDE [Concomitant]
     Dosage: 40 MG, PM
  4. LANTUS [Concomitant]
     Indication: DIABETES MELLITUS
     Dosage: 30 UNITS EVENING
  5. LANTUS [Concomitant]
     Dosage: (4 UNITS MORNING)
  6. LYRICA [Concomitant]
     Indication: COMPLEX REGIONAL PAIN SYNDROME
     Dosage: 150 MG, 2X/DAY
  7. LYRICA [Concomitant]
     Indication: PAIN
  8. MORPHINE SULFATE [Concomitant]
     Indication: COMPLEX REGIONAL PAIN SYNDROME
     Dosage: 30 MG, AS NEEDED (AT NIGHT)
  9. NORTRIPTYLINE [Concomitant]
     Indication: COMPLEX REGIONAL PAIN SYNDROME
     Dosage: 50 MG, AS NEEDED (1-2/BEDTIME PRN)
  10. ALBUTEROL [Concomitant]
     Indication: ASTHMA
     Dosage: 2.5 MG/ 3ML, QID
  11. ALPHAGAN [Concomitant]
     Indication: GLAUCOMA
     Dosage: 15% DROPS BOTH EYES
  12. FUROSEMIDE [Concomitant]
     Indication: OEDEMA
     Dosage: 20 MG, AM
  13. FEXOFENADINE [Concomitant]
     Indication: HYPERSENSITIVITY
     Dosage: 180 MG, DAILY
  14. PREVACID [Concomitant]
     Indication: GASTROOESOPHAGEAL REFLUX DISEASE
     Dosage: 30 MG, DAILY
  15. VITAMIN D [Concomitant]
     Dosage: 4000 IU, DAILY
  16. ADVAIR DISKUS 100/50 [Concomitant]
     Indication: CHRONIC OBSTRUCTIVE PULMONARY DISEASE
  17. SINGULAIR [Concomitant]
     Indication: ASTHMA
     Dosage: 10 MG, DAILY
  18. SPIRIVA [Concomitant]
     Indication: ASTHMA
     Dosage: 18 UG, DAILY
  19. TRAVATAN [Concomitant]
     Indication: GLAUCOMA
     Dosage: .004 %, DAILY (BOTH EYES)
  20. CALCIUM [Concomitant]
     Dosage: 1500 MG, DAILY
  21. ADVAIR DISKUS 100/50 [Concomitant]
     Indication: ASTHMA
     Dosage: 500 UG, 2X/DAY
  22. AMLODIPINE BESYLATE AND BENAZEPRIL HCL [Concomitant]
     Indication: BLOOD PRESSURE
     Dosage: 10/20 MG, DAILY
  23. HUMALOG [Concomitant]
     Indication: DIABETES MELLITUS
     Dosage: 14 UNITS BEFORE MEALS
  24. LEVOTHYROXINE [Concomitant]
     Indication: HYPOTHYROIDISM
     Dosage: .075 MG, DAILY
  25. TETRACYCLINE HCL [Suspect]
     Dosage: UNK
  26. BYSTOLIC [Concomitant]
     Indication: HYPERTENSION
     Dosage: 20 MG, DAILY
  27. LYRICA [Concomitant]
  28. PREDNISONE [Concomitant]
     Indication: ASTHMA
     Dosage: 10 MG, DAILY
  29. MORPHINE SULFATE [Concomitant]
     Indication: PAIN

REACTIONS (2)
  - ANGIOEDEMA [None]
  - RASH [None]
